FAERS Safety Report 9578299 (Version 1)
Quarter: 2013Q4

REPORT INFORMATION
  Report Type: Spontaneous
  Country: US (occurrence: US)
  Receive Date: 20131001
  Receipt Date: 20131001
  Transmission Date: 20140711
  Serious: No
  Sender: FDA-Public Use
  Company Number: US-AMGEN-USASP2013012416

PATIENT
  Age: 44 Year
  Sex: Female

DRUGS (17)
  1. ENBREL [Suspect]
     Indication: RHEUMATOID ARTHRITIS
     Dosage: 50 MG, QWK
     Route: 058
  2. MULTIVITAMINS, PLAIN [Concomitant]
     Dosage: UNK
  3. VITAMIN B COMPLEX [Concomitant]
     Dosage: 100 UNK, UNK
  4. CITRACAL + D                       /01438101/ [Concomitant]
     Dosage: UNK
  5. VITAMIN C                          /00008001/ [Concomitant]
     Dosage: 500 MG, UNK
  6. PROBIOTIC                          /06395501/ [Concomitant]
     Dosage: UNK
  7. CELEXA                             /00582602/ [Concomitant]
     Dosage: 20 MG, UNK
  8. TOPAMAX [Concomitant]
     Dosage: 200 MG, UNK
  9. DEXILANT [Concomitant]
     Dosage: 300 MG, UNK
  10. FOLIC ACID [Concomitant]
     Dosage: UNK
  11. TRAMADOL HCL [Concomitant]
     Dosage: 50 MG, UNK
  12. CORDRAN [Concomitant]
     Dosage: 4 MUG/CM (24*3)
  13. SYNTHROID [Concomitant]
     Dosage: 112 MUG, UNK
  14. DICYCLOMINE                        /00068601/ [Concomitant]
     Dosage: 20 MG, UNK
  15. CAMBIA [Concomitant]
     Dosage: 50 MG, UNK
  16. ADVAIR [Concomitant]
     Dosage: 100/50
  17. PROVENTIL                          /00139501/ [Concomitant]
     Dosage: 90 MUG, UNK

REACTIONS (4)
  - Upper respiratory tract infection [Unknown]
  - Bronchitis [Unknown]
  - Ear infection [Unknown]
  - Pneumonia [Unknown]
